FAERS Safety Report 11654654 (Version 1)
Quarter: 2015Q4

REPORT INFORMATION
  Report Type: Spontaneous
  Country: US (occurrence: US)
  Receive Date: 20151023
  Receipt Date: 20151023
  Transmission Date: 20160304
  Serious: Yes (Other)
  Sender: FDA-Public Use
  Company Number: US-SUN PHARMACEUTICAL INDUSTRIES LTD-2015US-104900

PATIENT
  Sex: Female

DRUGS (2)
  1. ALPRAZOLAM. [Suspect]
     Active Substance: ALPRAZOLAM
     Indication: ANXIETY
     Dosage: 1 MG, TID
     Route: 065
     Dates: start: 2014, end: 2014
  2. ALPRAZOLAM. [Suspect]
     Active Substance: ALPRAZOLAM
     Indication: STRESS

REACTIONS (12)
  - Product substitution issue [None]
  - Renal disorder [Unknown]
  - Back pain [Unknown]
  - Dysgeusia [Unknown]
  - Discomfort [Unknown]
  - Spinal pain [Unknown]
  - Malaise [None]
  - Malaise [Unknown]
  - Product quality issue [Unknown]
  - Nervous system disorder [None]
  - Product physical issue [None]
  - Product taste abnormal [None]
